FAERS Safety Report 6736345-X (Version None)
Quarter: 2010Q2

REPORT INFORMATION
  Report Type: 
  Country: None (occurrence: None)
  Receive Date: 20100521
  Receipt Date: 20100511
  Transmission Date: 20101027
  Serious: Yes (Hospitalization)
  Sender: FDA-Public Use
  Company Number: US-JNJFOC-20100506906

PATIENT
  Age: 6 Week
  Sex: Male
  Weight: 3.63 kg

DRUGS (2)
  1. CONCENTRATED TYLENOL INFANT DROPS [Suspect]
     Route: 048
  2. CONCENTRATED TYLENOL INFANT DROPS [Suspect]
     Indication: EAR PAIN
     Route: 048

REACTIONS (4)
  - BLOOD CALCIUM INCREASED [None]
  - DRUG INEFFECTIVE [None]
  - EAR INFECTION [None]
  - PRODUCT QUALITY ISSUE [None]
